FAERS Safety Report 7053954-1 (Version None)
Quarter: 2010Q4

REPORT INFORMATION
  Report Type: 
  Country: None (occurrence: None)
  Receive Date: 20101020
  Receipt Date: 20101014
  Transmission Date: 20110411
  Serious: Yes (Hospitalization)
  Sender: FDA-Public Use
  Company Number: JP-BAYER-200911402BYL

PATIENT
  Age: 69 Year
  Sex: Male
  Weight: 68 kg

DRUGS (4)
  1. NEXAVAR [Suspect]
     Indication: RENAL CELL CARCINOMA STAGE IV
     Dosage: TOTAL DAILY DOSE: 800 MG  UNIT DOSE: 200 MG
     Route: 048
     Dates: start: 20090324, end: 20090427
  2. BLOPRESS [Concomitant]
     Route: 048
     Dates: start: 20090324
  3. TAKEPRON [Concomitant]
     Route: 048
     Dates: start: 20090324
  4. MYSLEE [Concomitant]
     Route: 048
     Dates: start: 20090324

REACTIONS (1)
  - LIVER DISORDER [None]
